FAERS Safety Report 4398284-1 (Version None)
Quarter: 2004Q3

REPORT INFORMATION
  Report Type: 
  Country: None (occurrence: None)
  Receive Date: 20040712
  Receipt Date: 20040701
  Transmission Date: 20050211
  Serious: Yes (Life-Threatening, Hospitalization, Other)
  Sender: FDA-Public Use
  Company Number: DE-2004-025093

PATIENT
  Age: 36 Year
  Sex: Female
  Weight: 68 kg

DRUGS (1)
  1. MIRENA [Suspect]
     Indication: CONTRACEPTION
     Dosage: 20 UG/DAY, CONT, INTRA-UTRINE
     Route: 015
     Dates: start: 20001109, end: 20040127

REACTIONS (4)
  - DISSEMINATED INTRAVASCULAR COAGULATION [None]
  - HAEMORRHAGIC OVARIAN CYST [None]
  - OVARIAN CYST RUPTURED [None]
  - PERITONEAL HAEMORRHAGE [None]
